FAERS Safety Report 7457671-5 (Version None)
Quarter: 2011Q2

REPORT INFORMATION
  Report Type: 
  Country: None (occurrence: None)
  Receive Date: 20110502
  Receipt Date: 20110502
  Transmission Date: 20111010
  Serious: Yes (Hospitalization)
  Sender: FDA-Public Use
  Company Number: None

PATIENT
  Age: 56 Year
  Sex: Male
  Weight: 90.9 kg

DRUGS (1)
  1. TOCILIZUMAB [Suspect]
     Indication: STILL'S DISEASE ADULT ONSET
     Dosage: 6 MG/KG EVERY 2 WKS 8 MG/KG EVERY 2 WKS

REACTIONS (6)
  - PULMONARY THROMBOSIS [None]
  - OEDEMA PERIPHERAL [None]
  - HAEMATOCRIT DECREASED [None]
  - THROMBOSIS [None]
  - INCISION SITE HAEMORRHAGE [None]
  - SUTURE RUPTURE [None]
